FAERS Safety Report 5374638-1 (Version None)
Quarter: 2007Q2

REPORT INFORMATION
  Report Type: 
  Country: None (occurrence: None)
  Receive Date: 20070625
  Receipt Date: 20070321
  Transmission Date: 20071010
  Serious: Yes (Hospitalization)
  Sender: FDA-Public Use
  Company Number: 07P-163-0357966-00

PATIENT
  Age: 90 Year
  Sex: Female
  Weight: 73.4827 kg

DRUGS (7)
  1. HUMIRA [Suspect]
     Indication: ARTHRITIS
     Dosage: SUBCUTANEOUS
     Route: 058
     Dates: start: 20050101, end: 20070101
  2. ACEBUTOLOL HYDROCHLORIDE [Concomitant]
  3. ADVAIR DISKUS 100/50 [Concomitant]
  4. ERGOCALCIFEROL [Concomitant]
  5. CALCIUM CITRATE [Concomitant]
  6. ASPIRIN [Concomitant]
  7. ESOMEPRAZOLE MAGNESIUM [Concomitant]

REACTIONS (2)
  - BREAST CANCER [None]
  - HERPES ZOSTER [None]
